FAERS Safety Report 16142939 (Version 1)
Quarter: 2019Q2

REPORT INFORMATION
  Report Type: Spontaneous
  Country: US (occurrence: US)
  Receive Date: 20190401
  Receipt Date: 20190401
  Transmission Date: 20190711
  Serious: No
  Sender: FDA-Public Use
  Company Number: US-VIFOR (INTERNATIONAL) INC.-VIT-2019-02737

PATIENT
  Age: 76 Year
  Sex: Female

DRUGS (12)
  1. HEPARIN SODIUM. [Concomitant]
     Active Substance: HEPARIN SODIUM
  2. IRON [Concomitant]
     Active Substance: IRON
  3. NORVASC [Concomitant]
     Active Substance: AMLODIPINE BESYLATE
  4. FOLIC ACID. [Concomitant]
     Active Substance: FOLIC ACID
  5. OXYCODONE HYDROCHLORIDE. [Concomitant]
     Active Substance: OXYCODONE HYDROCHLORIDE
  6. PROZAC [Concomitant]
     Active Substance: FLUOXETINE HYDROCHLORIDE
  7. VITAMIN C [Concomitant]
     Active Substance: ASCORBIC ACID
  8. VITAMIN B12 [Concomitant]
     Active Substance: CYANOCOBALAMIN
  9. VELTASSA [Suspect]
     Active Substance: PATIROMER
     Indication: HYPERKALAEMIA
     Route: 048
     Dates: start: 20190308
  10. COLACE [Concomitant]
     Active Substance: DOCUSATE SODIUM
  11. VITAMIN D2 [Concomitant]
     Active Substance: ERGOCALCIFEROL
  12. FAMOTIDINE. [Concomitant]
     Active Substance: FAMOTIDINE

REACTIONS (2)
  - Intentional dose omission [Unknown]
  - Blood potassium increased [Unknown]

NARRATIVE: CASE EVENT DATE: 20190318
